FAERS Safety Report 12012762 (Version 9)
Quarter: 2019Q1

REPORT INFORMATION
  Report Type: Spontaneous
  Country: US (occurrence: US)
  Receive Date: 20160205
  Receipt Date: 20190111
  Transmission Date: 20190417
  Serious: No
  Sender: FDA-Public Use
  Company Number: US-PFIZER INC-2016062491

PATIENT
  Age: 63 Year
  Sex: Female
  Weight: 118 kg

DRUGS (26)
  1. LYRICA [Suspect]
     Active Substance: PREGABALIN
     Indication: NEUROPATHY PERIPHERAL
     Dosage: 225 MG, UNK (X2)
     Dates: start: 2005
  2. SOTALOL. [Concomitant]
     Active Substance: SOTALOL
     Dosage: UNK
  3. IBUPROFEN. [Concomitant]
     Active Substance: IBUPROFEN
     Dosage: 6 DF, DAILY (6 PER DAY)
  4. LYRICA [Suspect]
     Active Substance: PREGABALIN
     Indication: FIBROMYALGIA
     Dosage: 225 MG, 2X/DAY
     Route: 048
     Dates: start: 2006
  5. FLONASE [Concomitant]
     Active Substance: FLUTICASONE PROPIONATE
     Dosage: UNK (2 SPRAY(S) EACH NOSTRIL)
     Route: 045
  6. ALBUTEROL. [Concomitant]
     Active Substance: ALBUTEROL
     Indication: WHEEZING
     Dosage: UNK UNK, 4X/DAY (1 PUFF(S) ORAL INHALATION FOUR TIMES DAILY)
     Route: 045
  7. EFFEXOR [Concomitant]
     Active Substance: VENLAFAXINE HYDROCHLORIDE
     Dosage: 100 MG, UNK
  8. MOTRIN [Concomitant]
     Active Substance: IBUPROFEN
     Dosage: UNK
  9. TYLENOL [Concomitant]
     Active Substance: ACETAMINOPHEN
     Dosage: 51 MG, AS NEEDED
  10. FLONASE [Concomitant]
     Active Substance: FLUTICASONE PROPIONATE
     Dosage: UNK, AS NEEDED
  11. SUMATRIPTAN. [Concomitant]
     Active Substance: SUMATRIPTAN
     Indication: MIGRAINE
     Dosage: UNK ((1-2-TABS PO AT ONSET OF MIGRAINE, MAY REPEAT (NOT TO EXCEED 4 TABS PER 24 HRS)
     Route: 048
  12. EFFEXOR [Concomitant]
     Active Substance: VENLAFAXINE HYDROCHLORIDE
     Dosage: 150 MG, 2X/DAY
  13. DILTIAZEM. [Concomitant]
     Active Substance: DILTIAZEM
     Dosage: 120 MG, DAILY
     Route: 048
  14. MIACALCIN [Concomitant]
     Active Substance: CALCITONIN SALMON
     Dosage: UNK UNK, DAILY
     Route: 045
     Dates: end: 201504
  15. PERCOCET [Concomitant]
     Active Substance: ACETAMINOPHEN\OXYCODONE HYDROCHLORIDE
     Indication: PAIN
  16. VENLAFAXINE [Concomitant]
     Active Substance: VENLAFAXINE HYDROCHLORIDE
     Dosage: 100 MG, 2X/DAY
     Route: 048
  17. VITAMIN A + D [Concomitant]
     Dosage: UNK
  18. ISOSORBIDE MONONITRATE. [Concomitant]
     Active Substance: ISOSORBIDE MONONITRATE
     Dosage: 30 MG, 1X/DAY
     Route: 048
  19. PERCOCET [Concomitant]
     Active Substance: ACETAMINOPHEN\OXYCODONE HYDROCHLORIDE
     Indication: PAIN
     Dosage: 2 DF, AS NEEDED ((OXYCODONE -7.5, PARACETAMOL-325) (2 PO Q6 HRS PRN PAIN NOT TO EXCEED 8 TABS/DAY))
  20. SOTALOL. [Concomitant]
     Active Substance: SOTALOL
     Dosage: 40 MG, UNK (X2)
  21. LYRICA [Suspect]
     Active Substance: PREGABALIN
     Indication: POLYNEUROPATHY
  22. SUMATRIPTAN. [Concomitant]
     Active Substance: SUMATRIPTAN
     Indication: MIGRAINE
     Dosage: UNK, AS NEEDED
  23. DILTIAZEM. [Concomitant]
     Active Substance: DILTIAZEM
     Dosage: UNK, AS NEEDED
  24. PANTOPRAZOLE [Concomitant]
     Active Substance: PANTOPRAZOLE
     Dosage: 40 MG, DAILY
     Route: 048
  25. ALPRAZOLAM. [Concomitant]
     Active Substance: ALPRAZOLAM
     Indication: ANXIETY
     Dosage: 1 MG, 2X/DAY
     Route: 048
  26. ASPIRIN. [Concomitant]
     Active Substance: ASPIRIN
     Dosage: 81 MG, DAILY
     Route: 048

REACTIONS (14)
  - Asthenia [Recovered/Resolved]
  - Hypersomnia [Recovered/Resolved]
  - Decreased appetite [Recovered/Resolved]
  - Hyperhidrosis [Recovered/Resolved]
  - Malaise [Recovered/Resolved]
  - Pain [Recovered/Resolved]
  - Intentional product misuse [Recovered/Resolved]
  - Gait disturbance [Recovered/Resolved]
  - Burning sensation [Not Recovered/Not Resolved]
  - Mental disorder [Unknown]
  - Pain in extremity [Recovering/Resolving]
  - Withdrawal syndrome [Recovered/Resolved]
  - Feeling of body temperature change [Recovered/Resolved]
  - Headache [Recovered/Resolved]

NARRATIVE: CASE EVENT DATE: 20161226
